FAERS Safety Report 6617862-X (Version None)
Quarter: 2010Q1

REPORT INFORMATION
  Report Type: 
  Country: None (occurrence: None)
  Receive Date: 20100308
  Receipt Date: 20100224
  Transmission Date: 20100710
  Serious: Yes (Other)
  Sender: FDA-Public Use
  Company Number: IT-BAYER-201017838GPV

PATIENT
  Age: 8 Year
  Sex: Male

DRUGS (6)
  1. FLUDARABINE [Suspect]
     Indication: BONE MARROW CONDITIONING REGIMEN
     Dosage: FOR BMT
     Route: 065
  2. FLUDARABINE [Suspect]
     Dosage: FOR PBSC TRANSPLANTATION 2 MONTHS LATER
     Route: 065
  3. CYCLOPHOSPHAMIDE [Suspect]
     Indication: BONE MARROW CONDITIONING REGIMEN
     Dosage: FOR BMT
     Route: 065
  4. CYCLOPHOSPHAMIDE [Suspect]
     Dosage: FOR PBSC TRANSPLANTATION 2 MONTHS LATER
     Route: 065
  5. ANTI-THYMOCYTE GLOBULIN NOS [Suspect]
     Indication: BONE MARROW CONDITIONING REGIMEN
     Dosage: FOR BMT
     Route: 065
  6. ANTI-THYMOCYTE GLOBULIN NOS [Suspect]
     Dosage: FOR PBSC TRANSPLANTATION 2 MONTHS LATER
     Route: 065

REACTIONS (4)
  - ACUTE GRAFT VERSUS HOST DISEASE IN INTESTINE [None]
  - ACUTE GRAFT VERSUS HOST DISEASE IN SKIN [None]
  - CYTOMEGALOVIRUS INFECTION [None]
  - TRANSPLANT REJECTION [None]
